FAERS Safety Report 19432232 (Version 2)
Quarter: 2021Q3

REPORT INFORMATION
  Report Type: Spontaneous
  Country: JP (occurrence: JP)
  Receive Date: 20210618
  Receipt Date: 20210826
  Transmission Date: 20211014
  Serious: Yes (Other)
  Sender: FDA-Public Use
  Company Number: JP-TAKEDA-2021TJP038203

PATIENT
  Age: 32 Year
  Sex: Male

DRUGS (4)
  1. MUCOSTA [Concomitant]
     Active Substance: REBAMIPIDE
     Indication: PROPHYLAXIS AGAINST GASTROINTESTINAL ULCER
     Dosage: 100 MILLIGRAM, TID
     Route: 048
     Dates: start: 20210420
  2. TRINTELLIX [Suspect]
     Active Substance: VORTIOXETINE HYDROBROMIDE
     Indication: DEPRESSION
     Dosage: 10 MILLIGRAM, QD
     Route: 048
     Dates: start: 20210420, end: 20210610
  3. LOXONIN [Concomitant]
     Active Substance: LOXOPROFEN SODIUM
     Indication: HEADACHE
     Dosage: 60 MILLIGRAM, TID
     Route: 048
     Dates: start: 20210420
  4. TEGRETOL [Concomitant]
     Active Substance: CARBAMAZEPINE
     Indication: HEADACHE
     Dosage: 500 MILLIGRAM
     Route: 048
     Dates: start: 20210420

REACTIONS (4)
  - Melaena [Recovered/Resolved]
  - Nausea [Unknown]
  - Irritability [Unknown]
  - Agitation [Unknown]

NARRATIVE: CASE EVENT DATE: 20210513
